FAERS Safety Report 8013801-8 (Version None)
Quarter: 2011Q4

REPORT INFORMATION
  Report Type: 
  Country: None (occurrence: None)
  Receive Date: 20111229
  Receipt Date: 20111227
  Transmission Date: 20120403
  Serious: Yes (Hospitalization, Other)
  Sender: FDA-Public Use
  Company Number: CA-ROCHE-1017934

PATIENT
  Sex: Female

DRUGS (9)
  1. FLOVENT [Concomitant]
  2. PREDNISONE TAB [Concomitant]
  3. XOLAIR [Suspect]
     Indication: ASTHMA
     Route: 058
     Dates: start: 20110719
  4. VENTOLIN [Concomitant]
  5. FLONASE [Concomitant]
  6. XOLAIR [Suspect]
     Route: 058
     Dates: start: 20111126
  7. LOSEC (CANADA) [Concomitant]
  8. SINGULAIR [Concomitant]
  9. ADVAIR DISKUS 100/50 [Concomitant]

REACTIONS (4)
  - ASTHMA [None]
  - PAIN [None]
  - FATIGUE [None]
  - INJECTION SITE MASS [None]
